FAERS Safety Report 6973700-7 (Version None)
Quarter: 2010Q3

REPORT INFORMATION
  Report Type: 
  Country: None (occurrence: None)
  Receive Date: 20100909
  Receipt Date: 20100902
  Transmission Date: 20110219
  Serious: Yes (Other)
  Sender: FDA-Public Use
  Company Number: FR-AMGEN-KDL435245

PATIENT
  Sex: Male

DRUGS (4)
  1. NEULASTA [Suspect]
     Indication: CHEMOTHERAPY
     Route: 058
     Dates: start: 20100824, end: 20100827
  2. NEULASTA [Suspect]
  3. GRANOCYTE [Concomitant]
  4. EPOGEN [Concomitant]

REACTIONS (3)
  - MEDICATION ERROR [None]
  - WHITE BLOOD CELL COUNT ABNORMAL [None]
  - WRONG DRUG ADMINISTERED [None]
